FAERS Safety Report 24206192 (Version 3)
Quarter: 2025Q3

REPORT INFORMATION
  Report Type: Report from Study
  Country: EU (occurrence: EU)
  Receive Date: 20240813
  Receipt Date: 20250809
  Transmission Date: 20251020
  Serious: Yes (Other)
  Sender: ALEXION PHARMACEUTICALS
  Company Number: 2024A091075

PATIENT
  Sex: Male

DRUGS (3)
  1. OLAPARIB [Suspect]
     Active Substance: OLAPARIB
     Indication: Hormone-refractory prostate cancer
     Dosage: 300 MILLIGRAM, BID
     Dates: start: 20240315, end: 20240627
  2. ABIRATERONE [Concomitant]
     Active Substance: ABIRATERONE
  3. PREDNISOLONE [Concomitant]
     Active Substance: PREDNISOLONE

REACTIONS (4)
  - Renal failure [Recovered/Resolved]
  - Glomerular filtration rate decreased [Unknown]
  - Renal impairment [Unknown]
  - Anaemia [Recovered/Resolved]
